FAERS Safety Report 4368264-0 (Version None)
Quarter: 2004Q2

REPORT INFORMATION
  Report Type: 
  Country: None (occurrence: None)
  Receive Date: 20040527
  Receipt Date: 20040512
  Transmission Date: 20050107
  Serious: Yes (Death, Hospitalization)
  Sender: FDA-Public Use
  Company Number: 104269ISR

PATIENT
  Age: 76 Year
  Sex: Female

DRUGS (5)
  1. METFORMIN [Suspect]
     Indication: DIABETES MELLITUS
     Dosage: 1700 MILLIGRAM ORAL
     Route: 048
  2. NIMESULIDE [Concomitant]
  3. ALPRAZOLAM [Concomitant]
  4. GABAPENTIN [Concomitant]
  5. LISINOPRIL AND HYDROCHLOROTHIAZIDE [Concomitant]

REACTIONS (11)
  - ASTHENIA [None]
  - BLOOD GLUCOSE INCREASED [None]
  - BLOOD LACTATE DEHYDROGENASE INCREASED [None]
  - BLOOD POTASSIUM DECREASED [None]
  - BLOOD SODIUM DECREASED [None]
  - CARDIAC ARREST [None]
  - CONDITION AGGRAVATED [None]
  - INSOMNIA [None]
  - METABOLIC ACIDOSIS [None]
  - RENAL FAILURE ACUTE [None]
  - SOMNOLENCE [None]
